FAERS Safety Report 9314821 (Version 7)
Quarter: 2016Q2

REPORT INFORMATION
  Report Type: Report from Study
  Country: US (occurrence: US)
  Receive Date: 20130529
  Receipt Date: 20160627
  Transmission Date: 20160815
  Serious: Yes (Death, Other)
  Sender: FDA-Public Use
  Company Number: US-ROCHE-1228934

PATIENT

DRUGS (4)
  1. IDELALISIB [Suspect]
     Active Substance: IDELALISIB
     Indication: CHRONIC LYMPHOCYTIC LEUKAEMIA
     Dosage: AS CAPSULES OR TABLETS ON DAYS 1 THROUGH 28 OF EACH 28-DAY CYCLE FOR 48 WEEKS
     Route: 048
  2. IDELALISIB [Suspect]
     Active Substance: IDELALISIB
     Indication: LYMPHOCYTIC LYMPHOMA
  3. RITUXIMAB [Suspect]
     Active Substance: RITUXIMAB
     Indication: CHRONIC LYMPHOCYTIC LEUKAEMIA
     Dosage: 8 DOSES (CYCLES 1 AND 2).
     Route: 042
  4. RITUXIMAB [Suspect]
     Active Substance: RITUXIMAB
     Indication: LYMPHOCYTIC LYMPHOMA

REACTIONS (33)
  - Pneumonia [Fatal]
  - Urinary tract infection [Unknown]
  - Respiratory failure [Unknown]
  - White blood cell count decreased [Unknown]
  - Blood creatinine decreased [Unknown]
  - Fatigue [Unknown]
  - Febrile neutropenia [Unknown]
  - Hypoxia [Unknown]
  - Diarrhoea [Unknown]
  - Pyrexia [Unknown]
  - Cellulitis [Unknown]
  - Blood potassium decreased [Unknown]
  - Rash [Unknown]
  - Vomiting [Unknown]
  - Arthralgia [Unknown]
  - Lymphocyte count decreased [Unknown]
  - Platelet count decreased [Unknown]
  - Alanine aminotransferase increased [Recovering/Resolving]
  - Dyspnoea [Unknown]
  - Diverticulitis [Unknown]
  - Back pain [Unknown]
  - Blood sodium decreased [Unknown]
  - Nausea [Unknown]
  - Cough [Unknown]
  - Haemoglobin decreased [Unknown]
  - Aplasia pure red cell [Unknown]
  - Aspartate aminotransferase increased [Recovering/Resolving]
  - Dehydration [Unknown]
  - Metastatic malignant melanoma [Fatal]
  - Colitis [Unknown]
  - Intestinal perforation [Unknown]
  - Pruritus [Unknown]
  - Neutrophil count decreased [Unknown]
